FAERS Safety Report 11138245 (Version 2)
Quarter: 2015Q2

REPORT INFORMATION
  Report Type: Spontaneous
  Country: ES (occurrence: ES)
  Receive Date: 20150526
  Receipt Date: 20150623
  Transmission Date: 20150821
  Serious: Yes (Life-Threatening, Hospitalization, Other)
  Sender: FDA-Public Use
  Company Number: PHHY2015ES061705

PATIENT
  Age: 58 Year
  Sex: Male

DRUGS (8)
  1. EXJADE [Suspect]
     Active Substance: DEFERASIROX
     Dosage: 20 MG/KG, QD
     Route: 048
     Dates: start: 20121023, end: 20131126
  2. HYDROXYUREA. [Concomitant]
     Active Substance: HYDROXYUREA
     Dosage: 2 G, QD
     Route: 065
     Dates: start: 20121023, end: 20130606
  3. HYDROXYUREA. [Concomitant]
     Active Substance: HYDROXYUREA
     Dosage: 2 G, QD
     Route: 065
     Dates: start: 20140303
  4. EXJADE [Suspect]
     Active Substance: DEFERASIROX
     Dosage: 20 MG/KG, QD
     Route: 048
     Dates: start: 20131213, end: 20140625
  5. EXJADE [Suspect]
     Active Substance: DEFERASIROX
     Indication: CHRONIC MYELOMONOCYTIC LEUKAEMIA
     Dosage: 10 MG/KG, QD
     Route: 048
     Dates: start: 20121009, end: 20121023
  6. HYDROXYUREA. [Concomitant]
     Active Substance: HYDROXYUREA
     Dosage: 1 G, QD
     Route: 065
     Dates: start: 20131213, end: 20140303
  7. HYDROXYUREA. [Concomitant]
     Active Substance: HYDROXYUREA
     Indication: CHRONIC MYELOMONOCYTIC LEUKAEMIA
     Dosage: 1 G, QD
     Route: 065
     Dates: start: 201206, end: 20121023
  8. HYDROXYUREA. [Concomitant]
     Active Substance: HYDROXYUREA
     Dosage: 1.5 G, QD
     Route: 065
     Dates: start: 20130606, end: 20131213

REACTIONS (15)
  - Septic shock [Recovered/Resolved]
  - Malignant melanoma [Recovered/Resolved]
  - Pyrexia [Unknown]
  - Pain [Unknown]
  - Transaminases increased [Recovered/Resolved]
  - Folliculitis [Recovered/Resolved]
  - Odynophagia [Recovered/Resolved]
  - Acute myeloid leukaemia [Recovered/Resolved]
  - Oral disorder [Recovered/Resolved]
  - Chronic myelomonocytic leukaemia [Unknown]
  - Bicytopenia [Recovered/Resolved]
  - Enterobacter infection [Unknown]
  - Second primary malignancy [Recovered/Resolved]
  - Malignant neoplasm progression [Unknown]
  - Visual acuity reduced [Recovered/Resolved]

NARRATIVE: CASE EVENT DATE: 20130423
